FAERS Safety Report 7897273-X (Version None)
Quarter: 2011Q4

REPORT INFORMATION
  Report Type: 
  Country: None (occurrence: None)
  Receive Date: 20111028
  Receipt Date: 20111028
  Transmission Date: 20120403
  Serious: Yes (Other)
  Sender: FDA-Public Use
  Company Number: ALL1-2011-01806

PATIENT
  Age: 15 Year
  Sex: Female

DRUGS (3)
  1. FOCALIN [Concomitant]
  2. INTUNIV [Suspect]
     Indication: ATTENTION DEFICIT/HYPERACTIVITY DISORDER
     Dosage: 1 MG 1X/DAY:QD ORAL, 2 MG 1X/DAY:QD ORAL
     Route: 048
     Dates: start: 20110101, end: 20110101
  3. INTUNIV [Suspect]
     Indication: ATTENTION DEFICIT/HYPERACTIVITY DISORDER
     Dosage: 1 MG 1X/DAY:QD ORAL, 2 MG 1X/DAY:QD ORAL
     Route: 048
     Dates: start: 20110101, end: 20110101

REACTIONS (2)
  - SYNCOPE [None]
  - PANIC ATTACK [None]
